FAERS Safety Report 5717969-5 (Version None)
Quarter: 2008Q2

REPORT INFORMATION
  Report Type: 
  Country: None (occurrence: None)
  Receive Date: 20080425
  Receipt Date: 20080422
  Transmission Date: 20081010
  Serious: Yes (Other)
  Sender: FDA-Public Use
  Company Number: A0724102A

PATIENT
  Age: 43 Year
  Sex: Female

DRUGS (4)
  1. ADVAIR HFA [Suspect]
     Indication: ASTHMA
     Dosage: 1PUFF TWICE PER DAY
     Route: 055
     Dates: start: 20051001, end: 20060201
  2. ALBUTEROL [Concomitant]
  3. ACCOLATE [Concomitant]
  4. BENADRYL [Concomitant]

REACTIONS (7)
  - BLOOD GLUCOSE INCREASED [None]
  - DIABETES MELLITUS [None]
  - FACIAL PAIN [None]
  - FATIGUE [None]
  - MALAISE [None]
  - MUSCLE RIGIDITY [None]
  - PAIN [None]
